FAERS Safety Report 10463132 (Version 1)
Quarter: 2014Q3

REPORT INFORMATION
  Report Type: Spontaneous
  Country: BR (occurrence: BR)
  Receive Date: 20140919
  Receipt Date: 20140919
  Transmission Date: 20150326
  Serious: Yes (Other)
  Sender: FDA-Public Use
  Company Number: BR-ROCHE-1463785

PATIENT
  Sex: Female
  Weight: 84 kg

DRUGS (3)
  1. HUMALOG [Concomitant]
     Active Substance: INSULIN LISPRO
     Indication: DIABETES MELLITUS
     Dosage: 8 IU IN THE MORNING AND 8 IU AT DINNER
     Route: 065
     Dates: start: 2012
  2. DIOVAN [Concomitant]
     Active Substance: VALSARTAN
     Indication: HYPERTENSION
     Dosage: ADMINISTERED IN THE MORNING
     Route: 065
     Dates: start: 2010
  3. XENICAL [Suspect]
     Active Substance: ORLISTAT
     Indication: OBESITY
     Dosage: ADMINISTERED AT LUNCH AND AT DINNER
     Route: 065
     Dates: start: 2010, end: 2011

REACTIONS (3)
  - Infarction [Unknown]
  - Glaucoma [Unknown]
  - Weight increased [Not Recovered/Not Resolved]
